FAERS Safety Report 9300969 (Version 2)
Quarter: 2013Q4

REPORT INFORMATION
  Report Type: Spontaneous
  Country: US (occurrence: US)
  Receive Date: 20130521
  Receipt Date: 20131030
  Transmission Date: 20140711
  Serious: No
  Sender: FDA-Public Use
  Company Number: US-PFIZER INC-2013154635

PATIENT
  Age: 55 Year
  Sex: Female

DRUGS (6)
  1. CELEBREX [Suspect]
     Dosage: UNK
  2. CECLOR [Suspect]
     Dosage: UNK
  3. ENABLEX [Suspect]
     Dosage: UNK
  4. SOMA [Suspect]
     Dosage: UNK
  5. VERSED [Suspect]
     Dosage: UNK
  6. VICKS VAPORUB [Suspect]
     Dosage: UNK

REACTIONS (1)
  - Drug hypersensitivity [Unknown]
